FAERS Safety Report 7935834-X (Version None)
Quarter: 2011Q4

REPORT INFORMATION
  Report Type: 
  Country: None (occurrence: None)
  Receive Date: 20111123
  Receipt Date: 20111114
  Transmission Date: 20120403
  Serious: Yes (Hospitalization, Other)
  Sender: FDA-Public Use
  Company Number: CA-JNJFOC-20111106228

PATIENT
  Sex: Female
  Weight: 89 kg

DRUGS (17)
  1. HYDROCHLOROTHIAZIDE [Concomitant]
     Route: 048
  2. PAXIL [Concomitant]
     Route: 048
  3. BENADRYL [Concomitant]
     Indication: PREMEDICATION
     Route: 042
     Dates: start: 20111114
  4. VITAMIN B-12 [Concomitant]
     Route: 065
  5. REMICADE [Suspect]
     Indication: CROHN'S DISEASE
     Route: 042
     Dates: start: 20081208
  6. BIOCAL D FORTE [Concomitant]
     Route: 048
  7. DIOVAN [Concomitant]
     Route: 048
  8. EZETIMIBE [Concomitant]
     Route: 048
  9. METFORMIN HCL [Concomitant]
     Route: 048
  10. OTHER THERAPEUTIC PRODUCT [Concomitant]
     Route: 048
  11. ASAPHEN [Concomitant]
     Route: 048
  12. REMICADE [Suspect]
     Route: 042
     Dates: start: 20111114
  13. METOPROLOL SUCCINATE [Concomitant]
     Route: 048
  14. CARDIZEM [Concomitant]
     Route: 048
  15. SIMVASTATIN [Concomitant]
     Route: 048
  16. PREVACID [Concomitant]
     Route: 048
  17. METOPROLOL SUCCINATE [Concomitant]
     Route: 048

REACTIONS (5)
  - HYPERHIDROSIS [None]
  - NAUSEA [None]
  - INFUSION RELATED REACTION [None]
  - BLOOD GLUCOSE INCREASED [None]
  - CHEST PAIN [None]
